FAERS Safety Report 15454906 (Version 2)
Quarter: 2018Q4

REPORT INFORMATION
  Report Type: Report from Study
  Country: US (occurrence: US)
  Receive Date: 20181002
  Receipt Date: 20181031
  Transmission Date: 20190204
  Serious: No
  Sender: FDA-Public Use
  Company Number: US-ALEXION PHARMACEUTICALS INC.-A201812710

PATIENT
  Sex: Female

DRUGS (1)
  1. SOLIRIS [Suspect]
     Active Substance: ECULIZUMAB
     Indication: PRODUCT USED FOR UNKNOWN INDICATION
     Dosage: UNK
     Route: 065

REACTIONS (12)
  - Blood pressure increased [Unknown]
  - Lacrimation increased [Unknown]
  - Nausea [Unknown]
  - Limb injury [Not Recovered/Not Resolved]
  - Headache [Recovering/Resolving]
  - Abdominal discomfort [Unknown]
  - Haemoglobin decreased [Unknown]
  - Fatigue [Unknown]
  - Vomiting [Unknown]
  - Eye swelling [Unknown]
  - Abdominal distension [Unknown]
  - Arthropathy [Not Recovered/Not Resolved]

NARRATIVE: CASE EVENT DATE: 20180705
